FAERS Safety Report 21185130 (Version 1)
Quarter: 2022Q3

REPORT INFORMATION
  Report Type: Spontaneous
  Country: JP (occurrence: JP)
  Receive Date: 20220808
  Receipt Date: 20220808
  Transmission Date: 20221027
  Serious: Yes (Death, Other)
  Sender: FDA-Public Use
  Company Number: JP-BRISTOL-MYERS SQUIBB COMPANY-2022-081961

PATIENT
  Age: 85 Year
  Sex: Male

DRUGS (2)
  1. IPILIMUMAB [Suspect]
     Active Substance: IPILIMUMAB
     Indication: Lung neoplasm malignant
     Route: 041
  2. OPDIVO [Suspect]
     Active Substance: NIVOLUMAB
     Indication: Lung neoplasm malignant
     Route: 041

REACTIONS (5)
  - Fulminant type 1 diabetes mellitus [Fatal]
  - Loss of consciousness [Not Recovered/Not Resolved]
  - Shock symptom [Not Recovered/Not Resolved]
  - Mouth breathing [Not Recovered/Not Resolved]
  - Intestinal ischaemia [Not Recovered/Not Resolved]
